FAERS Safety Report 24993199 (Version 3)
Quarter: 2025Q2

REPORT INFORMATION
  Report Type: Report from Study
  Country: ES (occurrence: ES)
  Receive Date: 20250221
  Receipt Date: 20250403
  Transmission Date: 20250717
  Serious: Yes (Death, Life-Threatening, Hospitalization, Other)
  Sender: JOHNSON AND JOHNSON
  Company Number: ES-JNJFOC-20250237973

PATIENT
  Age: 84 Year
  Sex: Male
  Weight: 93 kg

DRUGS (1)
  1. TALQUETAMAB [Suspect]
     Active Substance: TALQUETAMAB
     Indication: Plasma cell myeloma
     Route: 065
     Dates: start: 20230612, end: 20240412

REACTIONS (1)
  - Infection [Fatal]

NARRATIVE: CASE EVENT DATE: 20240405
